FAERS Safety Report 10585867 (Version 1)
Quarter: 2014Q4

REPORT INFORMATION
  Report Type: Spontaneous
  Country: US (occurrence: None)
  Receive Date: 20141112
  Receipt Date: 20141112
  Transmission Date: 20150529
  Serious: No
  Sender: FDA-Public Use
  Company Number: PC-013-14

PATIENT
  Sex: Female

DRUGS (1)
  1. SPINOSAD. [Suspect]
     Active Substance: SPINOSAD
     Dosage: QPM 2 DAYS, SCALP
     Route: 061
     Dates: start: 201408

REACTIONS (2)
  - Influenza like illness [None]
  - Back pain [None]

NARRATIVE: CASE EVENT DATE: 20140814
